FAERS Safety Report 5674546-2 (Version None)
Quarter: 2008Q1

REPORT INFORMATION
  Report Type: 
  Country: None (occurrence: None)
  Receive Date: 20080319
  Receipt Date: 20080319
  Transmission Date: 20080703
  Serious: Yes (Life-Threatening, Hospitalization, Other)
  Sender: FDA-Public Use
  Company Number: None

PATIENT
  Age: 47 Year
  Sex: Male
  Weight: 116.892 kg

DRUGS (3)
  1. CISPLATIN [Suspect]
     Indication: MALIGNANT PALATE NEOPLASM
     Dosage: 100MG/M2 WEEK 1, 3 + 6 IV DRIP
     Route: 041
     Dates: start: 20080225, end: 20080225
  2. CISPLATIN [Suspect]
     Indication: TONGUE NEOPLASM MALIGNANT STAGE UNSPECIFIED
     Dosage: 100MG/M2 WEEK 1, 3 + 6 IV DRIP
     Route: 041
     Dates: start: 20080225, end: 20080225
  3. RADIATION THERAPY [Concomitant]

REACTIONS (4)
  - DEHYDRATION [None]
  - NAUSEA [None]
  - RESPIRATORY ARREST [None]
  - VOMITING [None]
